FAERS Safety Report 8473978-7 (Version None)
Quarter: 2012Q2

REPORT INFORMATION
  Report Type: 
  Country: None (occurrence: None)
  Receive Date: 20120628
  Receipt Date: 20120316
  Transmission Date: 20120825
  Serious: Yes (Death)
  Sender: FDA-Public Use
  Company Number: US-MYLANLABS-2012S1004840

PATIENT
  Age: 51 Year
  Sex: Male

DRUGS (9)
  1. CLOZAPINE [Suspect]
     Route: 048
     Dates: end: 20120101
  2. EFFEXOR [Concomitant]
  3. NOVOLOG [Concomitant]
     Indication: DIABETES MELLITUS
     Dosage: 70/30
  4. LOVAZA [Concomitant]
  5. OXYBUTYNIN [Concomitant]
  6. BENZTROPINE MESYLATE [Concomitant]
  7. RISPERIDONE [Concomitant]
  8. CLONAZEPAM [Concomitant]
  9. CLOZAPINE [Suspect]
     Dosage: 100MG QAM, 200MG Q AFTERNOON, 300MG HS
     Route: 048
     Dates: end: 20120101

REACTIONS (1)
  - MYOCARDIAL INFARCTION [None]
